FAERS Safety Report 9801131 (Version 1)
Quarter: 2014Q1

REPORT INFORMATION
  Report Type: Spontaneous
  Country: US (occurrence: US)
  Receive Date: 20140107
  Receipt Date: 20140107
  Transmission Date: 20141002
  Serious: No
  Sender: FDA-Public Use
  Company Number: US-BAYER-2014-001687

PATIENT
  Age: 47 Year
  Sex: Female
  Weight: 70.3 kg

DRUGS (1)
  1. ALEVE CAPLET [Suspect]
     Indication: ARTHRALGIA
     Dosage: 1 DF, PRN
     Route: 048
     Dates: start: 201306

REACTIONS (1)
  - Drug ineffective [None]
